FAERS Safety Report 7342724-2 (Version None)
Quarter: 2011Q1

REPORT INFORMATION
  Report Type: 
  Country: None (occurrence: None)
  Receive Date: 20110310
  Receipt Date: 20110117
  Transmission Date: 20110831
  Serious: Yes (Hospitalization)
  Sender: FDA-Public Use
  Company Number: US-JNJFOC-20110204476

PATIENT
  Age: 44 Year
  Sex: Male

DRUGS (5)
  1. THIOTHIXENE [Suspect]
     Indication: MANIA
     Route: 065
  2. HALOPERIDOL [Suspect]
     Indication: MANIA
     Route: 065
  3. LITHIUM CARBONATE [Interacting]
     Indication: MANIA
     Route: 065
  4. LITHIUM CARBONATE [Interacting]
     Route: 065
  5. HYDROCHLOROTHIAZIDE [Concomitant]
     Indication: BLOOD PRESSURE

REACTIONS (4)
  - DRUG INTERACTION [None]
  - COGWHEEL RIGIDITY [None]
  - CEREBRAL DISORDER [None]
  - NEUROTOXICITY [None]
